FAERS Safety Report 9674285 (Version 3)
Quarter: 2013Q4

REPORT INFORMATION
  Report Type: Spontaneous
  Country: US (occurrence: US)
  Receive Date: 20131107
  Receipt Date: 20131216
  Transmission Date: 20140711
  Serious: No
  Sender: FDA-Public Use
  Company Number: US-009507513-1311USA001805

PATIENT
  Sex: Female

DRUGS (7)
  1. AZASITE [Suspect]
     Indication: DRY EYE
     Dosage: 1 GTT, QD (ONE DROP IN EACH EYE EVERY DAY)
     Route: 047
     Dates: start: 2009
  2. AZASITE [Suspect]
     Indication: BLEPHARITIS
  3. RESTASIS [Concomitant]
  4. CELEBREX [Concomitant]
  5. SYNTHROID [Concomitant]
  6. PROVIGIL [Concomitant]
  7. VITAMINS (UNSPECIFIED) [Concomitant]

REACTIONS (4)
  - Eye irritation [Unknown]
  - Dry eye [Unknown]
  - Drug dose omission [Unknown]
  - Off label use [Unknown]
